FAERS Safety Report 7687474-8 (Version None)
Quarter: 2011Q3

REPORT INFORMATION
  Report Type: 
  Country: None (occurrence: None)
  Receive Date: 20110817
  Receipt Date: 20110808
  Transmission Date: 20111222
  Serious: Yes (Other)
  Sender: FDA-Public Use
  Company Number: US-BRISTOL-MYERS SQUIBB COMPANY-15905110

PATIENT
  Age: 78 Year
  Sex: Female

DRUGS (13)
  1. DEXLANSOPRAZOLE [Concomitant]
     Route: 048
  2. CALCIUM CARBONATE [Concomitant]
     Route: 048
  3. VITAMIN D [Concomitant]
     Dosage: 1DF=1000 UNIT
     Route: 048
  4. SIMVASTATIN [Concomitant]
     Route: 048
  5. ADVAIR DISKUS 100/50 [Concomitant]
     Dosage: 1DF=250-50MUG/DOSE INHALATION
  6. METHOTREXATE [Suspect]
     Indication: RHEUMATOID ARTHRITIS
     Dosage: STRENGTH - 2.5MG 1DF=8 TABS
     Route: 048
  7. CELEXA [Concomitant]
     Route: 048
  8. MEDROL [Concomitant]
     Dosage: ONE HALF TAB 180
     Route: 048
  9. FOLIC ACID [Concomitant]
     Route: 048
  10. ATENOLOL [Concomitant]
     Route: 048
  11. SYNTHROID [Concomitant]
     Route: 048
  12. ORENCIA [Suspect]
     Indication: RHEUMATOID ARTHRITIS
     Dosage: INITIAL DOSING THEN 500MG
     Route: 042
     Dates: start: 20110301
  13. NAMENDA [Concomitant]
     Route: 048

REACTIONS (1)
  - INTERSTITIAL LUNG DISEASE [None]
